FAERS Safety Report 6576895-2 (Version None)
Quarter: 2010Q1

REPORT INFORMATION
  Report Type: 
  Country: None (occurrence: None)
  Receive Date: 20100210
  Receipt Date: 20100210
  Transmission Date: 20100710
  Serious: No
  Sender: FDA-Public Use
  Company Number: B0605828A

PATIENT
  Sex: Female

DRUGS (3)
  1. RELENZA [Suspect]
     Indication: INFLUENZA
     Dosage: 10MG TWICE PER DAY
     Route: 055
     Dates: start: 20091104, end: 20091105
  2. MEDICON [Concomitant]
     Indication: DRUG USE FOR UNKNOWN INDICATION
     Dosage: 15MG THREE TIMES PER DAY
     Route: 048
     Dates: start: 20091104, end: 20091105
  3. CHINESE MEDICINE [Concomitant]
     Indication: DRUG USE FOR UNKNOWN INDICATION
     Dosage: 2.5G THREE TIMES PER DAY
     Route: 048
     Dates: start: 20091104, end: 20091105

REACTIONS (5)
  - COUGH [None]
  - DYSPNOEA [None]
  - PRURITUS [None]
  - RASH GENERALISED [None]
  - VOMITING [None]
